FAERS Safety Report 22064240 (Version 2)
Quarter: 2023Q2

REPORT INFORMATION
  Report Type: Spontaneous
  Country: US (occurrence: US)
  Receive Date: 20230306
  Receipt Date: 20230413
  Transmission Date: 20230722
  Serious: Yes (Other)
  Sender: FDA-Public Use
  Company Number: US-COOPERSURGICAL, INC.-US-2023CPS000625

PATIENT
  Age: 37 Year
  Sex: Female
  Weight: 125.62 kg

DRUGS (1)
  1. PARAGARD T 380A [Suspect]
     Active Substance: COPPER
     Indication: Product used for unknown indication
     Dosage: UNK
     Route: 015
     Dates: start: 201306

REACTIONS (6)
  - Uterine leiomyoma [Not Recovered/Not Resolved]
  - Device breakage [Not Recovered/Not Resolved]
  - Embedded device [Not Recovered/Not Resolved]
  - Device material issue [Not Recovered/Not Resolved]
  - Abnormal uterine bleeding [Unknown]
  - Pelvic pain [Unknown]

NARRATIVE: CASE EVENT DATE: 20230112
